FAERS Safety Report 8726480 (Version 3)
Quarter: 2013Q1

REPORT INFORMATION
  Report Type: Spontaneous
  Country: JP (occurrence: JP)
  Receive Date: 20120816
  Receipt Date: 20130207
  Transmission Date: 20140127
  Serious: Yes (Death)
  Sender: FDA-Public Use
  Company Number: JP-SANOFI-AVENTIS-2012SA056984

PATIENT
  Age: 30 Year
  Sex: Female
  Weight: 59 kg

DRUGS (12)
  1. MYSLEE [Suspect]
     Indication: SUICIDE ATTEMPT
     Route: 048
  2. MIRTAZAPINE [Suspect]
     Indication: SUICIDE ATTEMPT
     Route: 048
  3. CHLORPROMAZINE [Suspect]
     Indication: SUICIDE ATTEMPT
     Route: 048
  4. SERTRALINE HYDROCHLORIDE [Suspect]
     Indication: SUICIDE ATTEMPT
     Route: 048
  5. AMOXAN [Suspect]
     Indication: SUICIDE ATTEMPT
     Route: 048
  6. ZOPICLONE [Concomitant]
  7. ALPRAZOLAM [Concomitant]
  8. LORAZEPAM [Concomitant]
  9. CLOTIAZEPAM [Concomitant]
  10. FLUNITRAZEPAM [Concomitant]
  11. BROTIZOLAM [Concomitant]
  12. TRIAZOLAM [Concomitant]

REACTIONS (3)
  - Completed suicide [Fatal]
  - Toxicity to various agents [Fatal]
  - Overdose [Fatal]
